FAERS Safety Report 22585316 (Version 4)
Quarter: 2023Q2

REPORT INFORMATION
  Report Type: Report from Study
  Country: US (occurrence: US)
  Receive Date: 20230610
  Receipt Date: 20230630
  Transmission Date: 20230722
  Serious: No
  Sender: FDA-Public Use
  Company Number: US-002147023-NVSC2023US130387

PATIENT
  Sex: Female

DRUGS (1)
  1. ENTRESTO [Suspect]
     Active Substance: SACUBITRIL\VALSARTAN
     Indication: Product used for unknown indication
     Dosage: 1 DOSAGE FORM, BID, (24/26 MG) STARTED IN 2023
     Route: 048

REACTIONS (10)
  - Dysstasia [Unknown]
  - Back pain [Unknown]
  - Depression [Unknown]
  - Pollakiuria [Unknown]
  - Vomiting [Unknown]
  - Hiatus hernia [Unknown]
  - Dyspnoea [Unknown]
  - Vision blurred [Unknown]
  - Weight fluctuation [Unknown]
  - Drug ineffective [Unknown]
